FAERS Safety Report 16553031 (Version 1)
Quarter: 2019Q3

REPORT INFORMATION
  Report Type: Spontaneous
  Country: US (occurrence: US)
  Receive Date: 20190710
  Receipt Date: 20190710
  Transmission Date: 20191004
  Serious: No
  Sender: FDA-Public Use
  Company Number: US-PFIZER INC-2018316011

PATIENT
  Age: 18 Year
  Sex: Female
  Weight: 64 kg

DRUGS (3)
  1. GENOTROPIN [Suspect]
     Active Substance: SOMATROPIN
     Indication: GROWTH FAILURE
     Dosage: UNK UNK, 1X/DAY
  2. GENOTROPIN [Suspect]
     Active Substance: SOMATROPIN
     Indication: BONE DEVELOPMENT ABNORMAL
     Dosage: 0.5 MG, DAILY
     Dates: end: 20180804
  3. GENOTROPIN [Suspect]
     Active Substance: SOMATROPIN
     Dosage: 5 MG, 1X/DAY (INJECTION IN THE LEG OR STOMACH AND MOSTLY IN THE LEG OR IN THE BUTTOCK)

REACTIONS (3)
  - Product dose omission [Unknown]
  - Aggression [Unknown]
  - Poor quality device used [Unknown]

NARRATIVE: CASE EVENT DATE: 201808
